FAERS Safety Report 14366428 (Version 4)
Quarter: 2020Q2

REPORT INFORMATION
  Report Type: Report from Study
  Country: MX (occurrence: MX)
  Receive Date: 20180109
  Receipt Date: 20200420
  Transmission Date: 20200713
  Serious: Yes (Other)
  Sender: FDA-Public Use
  Company Number: PHHY2018MX000890

PATIENT
  Sex: Female
  Weight: 80 kg

DRUGS (1)
  1. DIOVAN [Suspect]
     Active Substance: VALSARTAN
     Indication: PRODUCT USED FOR UNKNOWN INDICATION
     Dosage: 320 MG, QD (4 YEARS AGO APPROXIMATELY)
     Route: 048

REACTIONS (5)
  - Weight decreased [Unknown]
  - Influenza [Not Recovered/Not Resolved]
  - Pneumonia [Unknown]
  - Productive cough [Recovering/Resolving]
  - Malaise [Unknown]
